FAERS Safety Report 7783594-8 (Version None)
Quarter: 2011Q3

REPORT INFORMATION
  Report Type: 
  Country: None (occurrence: None)
  Receive Date: 20110928
  Receipt Date: 20101021
  Transmission Date: 20111222
  Serious: No
  Sender: FDA-Public Use
  Company Number: US-MYLANLABS-2010S1019590

PATIENT
  Age: 61 Year
  Sex: Female

DRUGS (3)
  1. LEVOTHYROXINE SODIUM [Concomitant]
  2. CARVEDILOL [Suspect]
     Indication: BLOOD PRESSURE
     Route: 048
     Dates: start: 20100330
  3. FUROSEMIDE [Suspect]
     Route: 048
     Dates: start: 20100401

REACTIONS (2)
  - DISTURBANCE IN ATTENTION [None]
  - FATIGUE [None]
